FAERS Safety Report 11504773 (Version 1)
Quarter: 2015Q3

REPORT INFORMATION
  Report Type: Spontaneous
  Country: US (occurrence: US)
  Receive Date: 20150915
  Receipt Date: 20150915
  Transmission Date: 20151125
  Serious: No
  Sender: FDA-Public Use
  Company Number: US-ROCHE-685786

PATIENT
  Age: 44 Year
  Sex: Female

DRUGS (4)
  1. PEGASYS [Suspect]
     Active Substance: PEGINTERFERON ALFA-2A
     Indication: HEPATITIS C
     Dosage: FORM :PREFILLED SYRINGE
     Route: 058
  2. RIBAVIRIN. [Suspect]
     Active Substance: RIBAVIRIN
     Route: 048
  3. RIBAVIRIN. [Suspect]
     Active Substance: RIBAVIRIN
     Indication: HEPATITIS C
     Dosage: DIVIDED DOSES
     Route: 048
     Dates: start: 20100128, end: 201004
  4. RIBAVIRIN. [Suspect]
     Active Substance: RIBAVIRIN
     Route: 048

REACTIONS (13)
  - Headache [Recovering/Resolving]
  - Diarrhoea [Unknown]
  - Influenza like illness [Unknown]
  - Crying [Unknown]
  - Anxiety [Unknown]
  - Vertigo [Recovered/Resolved]
  - Akathisia [Unknown]
  - Weight decreased [Unknown]
  - Anaemia [Not Recovered/Not Resolved]
  - Dizziness [Unknown]
  - Vision blurred [Recovering/Resolving]
  - Dysgeusia [Unknown]
  - Migraine [Unknown]

NARRATIVE: CASE EVENT DATE: 20100128
